FAERS Safety Report 13836459 (Version 2)
Quarter: 2017Q4

REPORT INFORMATION
  Report Type: Spontaneous
  Country: US (occurrence: US)
  Receive Date: 20170804
  Receipt Date: 20171018
  Transmission Date: 20180320
  Serious: Yes (Hospitalization)
  Sender: FDA-Public Use
  Company Number: US-ACTELION-A-NJ2017-157511

PATIENT
  Age: 45 Year
  Sex: Female
  Weight: 47.17 kg

DRUGS (4)
  1. XARELTO [Concomitant]
     Active Substance: RIVAROXABAN
  2. OPSUMIT [Concomitant]
     Active Substance: MACITENTAN
  3. REVATIO [Concomitant]
     Active Substance: SILDENAFIL CITRATE
  4. VELETRI [Suspect]
     Active Substance: EPOPROSTENOL
     Indication: PULMONARY HYPERTENSION
     Dosage: 19.5 NG/KG, PER MIN
     Route: 042

REACTIONS (6)
  - Gastrointestinal pain [Unknown]
  - Nausea [Unknown]
  - Vomiting [Unknown]
  - Lung infection [Unknown]
  - Bacterial infection [Unknown]
  - Pericardial effusion [Unknown]
